FAERS Safety Report 20405769 (Version 1)
Quarter: 2022Q1

REPORT INFORMATION
  Report Type: Spontaneous
  Country: US (occurrence: None)
  Receive Date: 20220130
  Receipt Date: 20220130
  Transmission Date: 20220423
  Serious: No
  Sender: FDA-Public Use
  Company Number: None

PATIENT
  Age: 53 Year
  Sex: Female
  Weight: 71.1 kg

DRUGS (1)
  1. COCOA BUTTER\PHENYLEPHRINE HYDROCHLORIDE [Suspect]
     Active Substance: COCOA BUTTER\PHENYLEPHRINE HYDROCHLORIDE
     Indication: Haemorrhoids
     Dosage: OTHER QUANTITY : 1 SUPPOSITORY(IES);?FREQUENCY : AS NEEDED;?
     Route: 054
     Dates: start: 20220130, end: 20220130

REACTIONS (2)
  - Muscle spasms [None]
  - Diarrhoea [None]

NARRATIVE: CASE EVENT DATE: 20220130
